FAERS Safety Report 4847248-X (Version None)
Quarter: 2005Q4

REPORT INFORMATION
  Report Type: 
  Country: None (occurrence: None)
  Receive Date: 20051207
  Receipt Date: 20051122
  Transmission Date: 20060501
  Serious: Yes (Hospitalization)
  Sender: FDA-Public Use
  Company Number: US016337

PATIENT
  Age: 61 Year
  Sex: Female

DRUGS (4)
  1. CHLORAMBUCIL [Suspect]
     Route: 048
     Dates: start: 20051005
  2. ETODOLAC [Suspect]
     Dosage: 2400MG PER DAY
     Route: 048
     Dates: start: 20050920
  3. TRANDOLAPRIL [Concomitant]
     Indication: HYPERTENSION
     Route: 048
     Dates: start: 20050112
  4. INDAPAMIDE [Concomitant]
     Route: 048
     Dates: start: 20050112

REACTIONS (2)
  - DYSPNOEA [None]
  - PYREXIA [None]
